FAERS Safety Report 4990108-4 (Version None)
Quarter: 2006Q2

REPORT INFORMATION
  Report Type: 
  Country: None (occurrence: None)
  Receive Date: 20060503
  Receipt Date: 20050823
  Transmission Date: 20061013
  Serious: Yes (Hospitalization)
  Sender: FDA-Public Use
  Company Number: US-MERCK-0508USA03920

PATIENT
  Age: 65 Year
  Sex: Male
  Weight: 91 kg

DRUGS (33)
  1. CELEBREX [Concomitant]
     Route: 065
  2. CEPHALEXIN [Concomitant]
     Route: 065
  3. NAPROXEN [Concomitant]
     Route: 065
  4. QUININE SULFATE [Concomitant]
     Indication: RESTLESS LEGS SYNDROME
     Route: 065
  5. FOLIC ACID [Concomitant]
     Route: 065
  6. TRIAMCINOLONE [Concomitant]
     Route: 065
  7. HYDROCODONE BITARTRATE [Concomitant]
     Route: 065
  8. ZITHROMAX [Concomitant]
     Route: 065
  9. TIZANIDINE HYDROCHLORIDE [Concomitant]
     Route: 065
  10. TEMAZEPAM [Concomitant]
     Route: 065
  11. WARFARIN [Concomitant]
     Route: 065
     Dates: start: 19991201
  12. ALDARA [Concomitant]
     Route: 065
  13. PSORCON [Concomitant]
     Route: 065
  14. CLARITIN-D [Concomitant]
     Route: 065
  15. TRIMOX [Concomitant]
     Route: 065
  16. FLONASE [Concomitant]
     Indication: NASAL CONGESTION
     Route: 065
  17. SKELAXIN [Concomitant]
     Route: 065
  18. AMI-TEX LA (NEW FORMULA) [Concomitant]
     Route: 065
  19. LEVAQUIN [Concomitant]
     Route: 065
  20. METHYLPREDNISOLONE [Concomitant]
     Route: 065
  21. NEURONTIN [Concomitant]
     Route: 065
  22. ATENOLOL [Concomitant]
     Route: 065
  23. OXYCONTIN [Concomitant]
     Indication: PAIN
     Route: 065
  24. MORPHINE SULFATE [Concomitant]
     Indication: PAIN
     Route: 065
  25. MIRALAX [Concomitant]
     Route: 065
  26. ZANAFLEX [Concomitant]
     Route: 065
  27. CIPROFLOXACIN HCL [Concomitant]
     Indication: INFECTION
     Route: 065
  28. NITROQUICK [Concomitant]
     Route: 065
  29. BEXTRA [Concomitant]
     Route: 065
  30. BIAXIN [Concomitant]
     Route: 065
  31. ZYRTEC [Concomitant]
     Route: 065
  32. ADVIL [Concomitant]
     Route: 065
     Dates: start: 19990826
  33. VIOXX [Suspect]
     Indication: OSTEOARTHRITIS
     Route: 048
     Dates: start: 19991214, end: 20040912

REACTIONS (9)
  - ACUTE MYOCARDIAL INFARCTION [None]
  - BLOOD TRIGLYCERIDES INCREASED [None]
  - CARDIAC HYPERTROPHY [None]
  - CHEST PAIN [None]
  - CORONARY ARTERY STENOSIS [None]
  - HYPERTENSION [None]
  - INJURY [None]
  - MYOCARDIAL INFARCTION [None]
  - PANCREATITIS [None]
